FAERS Safety Report 15677541 (Version 3)
Quarter: 2018Q4

REPORT INFORMATION
  Report Type: Spontaneous
  Country: ES (occurrence: ES)
  Receive Date: 20181130
  Receipt Date: 20181228
  Transmission Date: 20190205
  Serious: Yes (Hospitalization)
  Sender: FDA-Public Use
  Company Number: ES-TEVA-2018-ES-980812

PATIENT
  Age: 43 Year
  Sex: Female

DRUGS (4)
  1. CEFACLOR TEVA  500 MG CAPSULAS EFG, 12 [Suspect]
     Active Substance: CEFACLOR
     Indication: EAR INFECTION
     Route: 048
     Dates: start: 20180710, end: 20180713
  2. METAMIZOL (111A) [Suspect]
     Active Substance: METAMIZOL SODIUM
     Indication: EAR INFECTION
     Route: 048
     Dates: start: 20180618
  3. AMOXICILINA (108A) [Suspect]
     Active Substance: AMOXICILLIN
     Indication: EAR INFECTION
     Route: 048
     Dates: start: 20180630, end: 20180709
  4. FLUCONAZOL (2432A) [Suspect]
     Active Substance: FLUCONAZOLE
     Indication: EAR INFECTION
     Route: 048
     Dates: start: 20180730, end: 20180806

REACTIONS (1)
  - Erythema multiforme [Recovering/Resolving]

NARRATIVE: CASE EVENT DATE: 20180801
